FAERS Safety Report 13863449 (Version 4)
Quarter: 2017Q4

REPORT INFORMATION
  Report Type: Spontaneous
  Country: US (occurrence: US)
  Receive Date: 20170814
  Receipt Date: 20171006
  Transmission Date: 20180320
  Serious: Yes (Death, Other)
  Sender: FDA-Public Use
  Company Number: US-PFIZER INC-2017348283

PATIENT
  Age: 72 Year
  Sex: Female
  Weight: 132.88 kg

DRUGS (2)
  1. IBRANCE [Suspect]
     Active Substance: PALBOCICLIB
     Dosage: 125 MG, CYCLIC (D 1-21 Q 28DAYS)
     Route: 048
     Dates: end: 201709
  2. IBRANCE [Suspect]
     Active Substance: PALBOCICLIB
     Indication: BREAST CANCER METASTATIC
     Dosage: 125 MG, CYCLIC (D 1-21 Q 28DAYS)
     Route: 048
     Dates: start: 20170724

REACTIONS (4)
  - Arthralgia [Unknown]
  - Pain [Recovering/Resolving]
  - Nausea [Not Recovered/Not Resolved]
  - Death [Fatal]

NARRATIVE: CASE EVENT DATE: 20170916
